FAERS Safety Report 25651091 (Version 1)
Quarter: 2025Q3

REPORT INFORMATION
  Report Type: Report from Study
  Country: US (occurrence: US)
  Receive Date: 20250806
  Receipt Date: 20250806
  Transmission Date: 20251021
  Serious: Yes (Hospitalization, Other)
  Sender: TAKEDA
  Company Number: US-TAKEDA-2024TUS112140

PATIENT
  Sex: Female

DRUGS (3)
  1. VEDOLIZUMAB [Suspect]
     Active Substance: VEDOLIZUMAB
     Indication: Crohn^s disease
     Dosage: 108 MILLIGRAM, Q2WEEKS
  2. VEDOLIZUMAB [Suspect]
     Active Substance: VEDOLIZUMAB
     Dosage: 108 MILLIGRAM, Q2WEEKS
  3. VENOFER [Concomitant]
     Active Substance: IRON SUCROSE

REACTIONS (10)
  - Crohn^s disease [Unknown]
  - Infection [Unknown]
  - Injection site swelling [Unknown]
  - Skin irritation [Unknown]
  - Injection site induration [Unknown]
  - Injection site warmth [Recovered/Resolved]
  - Product dose omission issue [Unknown]
  - Abdominal pain [Unknown]
  - Injection site erythema [Unknown]
  - Constipation [Unknown]
